FAERS Safety Report 9178285 (Version 2)
Quarter: 2013Q2

REPORT INFORMATION
  Report Type: Spontaneous
  Country: US (occurrence: US)
  Receive Date: 20130321
  Receipt Date: 20130429
  Transmission Date: 20140414
  Serious: Yes (Hospitalization)
  Sender: FDA-Public Use
  Company Number: US-BAYER-2013-032627

PATIENT
  Age: 44 Year
  Sex: Female

DRUGS (16)
  1. YASMIN [Suspect]
     Indication: MENOPAUSAL SYMPTOMS
  2. YASMIN [Suspect]
     Indication: HOT FLUSH
  3. YAZ [Suspect]
  4. SINGULAIR [Concomitant]
     Indication: MULTIPLE ALLERGIES
     Dosage: 10 MG, DAILY
  5. PREVACID [Concomitant]
     Dosage: 30 MG, DAILY
  6. VITAMIN C [Concomitant]
     Dosage: DAILY
  7. FISH OIL [Concomitant]
     Dosage: DAILY
  8. CALCIUM [Concomitant]
     Dosage: DAILY
  9. ALBUTEROL [Concomitant]
     Indication: ASTHMA
     Dosage: MDI TWO PUFFS Q4-6H. P.R.N.
  10. BUSPAR [Concomitant]
  11. CLARITIN [Concomitant]
  12. FLONASE [Concomitant]
  13. ZYRTEC [Concomitant]
  14. NABUMETONE [Concomitant]
     Dosage: 500 MG, UNK
     Route: 048
     Dates: start: 20070614
  15. RELAFEN [Concomitant]
     Indication: ARTHRITIS
     Dosage: 500 MG, BID
     Route: 048
     Dates: start: 20070617
  16. SMZ-TMP DS [Concomitant]
     Dosage: 800/160 MG
     Route: 048
     Dates: start: 20070706

REACTIONS (2)
  - Deep vein thrombosis [Recovering/Resolving]
  - Pulmonary embolism [Recovered/Resolved]
